FAERS Safety Report 25546771 (Version 1)
Quarter: 2025Q3

REPORT INFORMATION
  Report Type: Spontaneous
  Country: US (occurrence: US)
  Receive Date: 20250714
  Receipt Date: 20250714
  Transmission Date: 20251021
  Serious: No
  Sender: RANBAXY
  Company Number: US-SUN PHARMACEUTICAL INDUSTRIES LTD-2024R1-426934

PATIENT
  Sex: Female

DRUGS (4)
  1. CLOBETASOL [Suspect]
     Active Substance: CLOBETASOL
     Indication: Psoriasis
     Route: 061
  2. HUMIRA [Concomitant]
     Active Substance: ADALIMUMAB
     Indication: Psoriasis
     Route: 065
     Dates: start: 20231108
  3. HUMIRA [Concomitant]
     Active Substance: ADALIMUMAB
     Indication: Arthralgia
  4. PIMECROLIMUS [Concomitant]
     Active Substance: PIMECROLIMUS
     Indication: Psoriasis
     Route: 065

REACTIONS (1)
  - Therapy non-responder [Unknown]
